FAERS Safety Report 9384807 (Version 1)
Quarter: 2013Q3

REPORT INFORMATION
  Report Type: Spontaneous
  Country: IN (occurrence: None)
  Receive Date: 20130701
  Receipt Date: 20130701
  Transmission Date: 20140515
  Serious: Yes (Other)
  Sender: FDA-Public Use
  Company Number: IPC201306-000246

PATIENT
  Age: 69 Year
  Sex: Male

DRUGS (5)
  1. ATENOLOL (ATENOLOL) (ATENOLOL) [Suspect]
     Indication: HYPERTENSION
     Route: 048
  2. FUROSEMIDE [Suspect]
     Route: 048
  3. DICLOFENAC + SERRATIOPEPTIDASE [Suspect]
     Dosage: STOPPED
  4. RANITIDINE [Suspect]
     Route: 048
  5. AMPICILLIN + CLOXACILLIN [Suspect]

REACTIONS (2)
  - Renal failure acute [None]
  - Drug interaction [None]
